FAERS Safety Report 6405380-3 (Version None)
Quarter: 2009Q4

REPORT INFORMATION
  Report Type: 
  Country: None (occurrence: None)
  Receive Date: 20091016
  Receipt Date: 20091016
  Transmission Date: 20100525
  Serious: Yes (Other)
  Sender: FDA-Public Use
  Company Number: None

PATIENT
  Sex: Female
  Weight: 58.9676 kg

DRUGS (2)
  1. RECLAST [Suspect]
     Indication: BONE DENSITY ABNORMAL
     Dosage: INJECTION 1 A YEAR
     Dates: start: 20081201
  2. TETANUS SHOT [Suspect]
     Dosage: EVERY 10 YRS
     Dates: start: 20090701

REACTIONS (3)
  - EYE DISORDER [None]
  - INFLUENZA LIKE ILLNESS [None]
  - UNEVALUABLE EVENT [None]
